FAERS Safety Report 12188850 (Version 4)
Quarter: 2016Q2

REPORT INFORMATION
  Report Type: Report from Study
  Country: CO (occurrence: CO)
  Receive Date: 20160317
  Receipt Date: 20160510
  Transmission Date: 20160815
  Serious: Yes (Death, Hospitalization, Other)
  Sender: FDA-Public Use
  Company Number: PHHY2015CO086108

PATIENT
  Age: 15 Year
  Sex: Female
  Weight: 70 kg

DRUGS (4)
  1. EXJADE [Suspect]
     Active Substance: DEFERASIROX
     Indication: IRON OVERLOAD
     Dosage: 3 DF, UNK
     Route: 048
     Dates: start: 20150131, end: 201504
  2. MORPHINE [Concomitant]
     Active Substance: MORPHINE
     Indication: PRODUCT USED FOR UNKNOWN INDICATION
     Route: 065
  3. EXJADE [Suspect]
     Active Substance: DEFERASIROX
     Dosage: 3 DF, UNK
     Route: 048
     Dates: end: 201601
  4. EXJADE [Suspect]
     Active Substance: DEFERASIROX
     Dosage: 1500 MG (20 MG/KG), QD
     Route: 048

REACTIONS (18)
  - Stress [Unknown]
  - Choking [Fatal]
  - Lung disorder [Unknown]
  - Intracardiac mass [Unknown]
  - Asphyxia [Fatal]
  - Chikungunya virus infection [Unknown]
  - Cough [Unknown]
  - Pyrexia [Unknown]
  - Oedema [Unknown]
  - Inflammation [Unknown]
  - Flavivirus infection [Unknown]
  - Gastritis [Not Recovered/Not Resolved]
  - Pain [Unknown]
  - Blood iron decreased [Unknown]
  - Bacteraemia [Unknown]
  - Venous occlusion [Fatal]
  - Dengue fever [Unknown]
  - General physical health deterioration [Unknown]

NARRATIVE: CASE EVENT DATE: 201601
